FAERS Safety Report 15906593 (Version 2)
Quarter: 2019Q1

REPORT INFORMATION
  Report Type: Spontaneous
  Country: US (occurrence: US)
  Receive Date: 20190204
  Receipt Date: 20190301
  Transmission Date: 20190417
  Serious: Yes (Hospitalization)
  Sender: FDA-Public Use
  Company Number: US-SA-2019SA028290

PATIENT
  Age: 44 Year
  Weight: 154 kg

DRUGS (1)
  1. LANTUS SOLOSTAR [Suspect]
     Active Substance: INSULIN GLARGINE
     Dosage: 100 U
     Route: 065
     Dates: start: 20181112, end: 20181214

REACTIONS (5)
  - Blister [Recovered/Resolved]
  - Hypersensitivity [Unknown]
  - Pharyngeal oedema [Unknown]
  - Dehydration [Recovered/Resolved]
  - Mouth swelling [Recovered/Resolved]

NARRATIVE: CASE EVENT DATE: 20181112
